FAERS Safety Report 9543545 (Version 2)
Quarter: 2013Q4

REPORT INFORMATION
  Report Type: Spontaneous
  Country: US (occurrence: US)
  Receive Date: 20130923
  Receipt Date: 20131014
  Transmission Date: 20140711
  Serious: Yes (Other)
  Sender: FDA-Public Use
  Company Number: US-TEVA-432959USA

PATIENT
  Age: 41 Year
  Sex: Female
  Weight: 95.34 kg

DRUGS (1)
  1. PARAGARD 380A [Suspect]
     Indication: CONTRACEPTION
     Dates: start: 20130624, end: 20130916

REACTIONS (3)
  - Device dislocation [Recovered/Resolved]
  - Pain [Unknown]
  - Abdominal pain [Unknown]
